FAERS Safety Report 7539710-6 (Version None)
Quarter: 2011Q2

REPORT INFORMATION
  Report Type: 
  Country: None (occurrence: None)
  Receive Date: 20110609
  Receipt Date: 20110609
  Transmission Date: 20111010
  Serious: Yes (Hospitalization)
  Sender: FDA-Public Use
  Company Number: None

PATIENT
  Sex: Male
  Weight: 49 kg

DRUGS (3)
  1. CYTARABINE [Suspect]
     Dosage: 36000 MG
     Dates: end: 20090926
  2. NEUPOGEN [Suspect]
     Dosage: 4165MG
     Dates: end: 20091013
  3. ELSPAR [Suspect]
     Dosage: 18000 MG
     Dates: end: 20090926

REACTIONS (5)
  - DIARRHOEA [None]
  - CLOSTRIDIUM TEST POSITIVE [None]
  - PYREXIA [None]
  - BLOOD CULTURE POSITIVE [None]
  - ALPHA HAEMOLYTIC STREPTOCOCCAL INFECTION [None]
